FAERS Safety Report 5361343-0 (Version None)
Quarter: 2007Q2

REPORT INFORMATION
  Report Type: 
  Country: None (occurrence: None)
  Receive Date: 20070612
  Receipt Date: 20070530
  Transmission Date: 20071010
  Serious: Yes (Other)
  Sender: FDA-Public Use
  Company Number: T200700643

PATIENT
  Age: 64 Year
  Sex: Female

DRUGS (1)
  1. LIQUID BAROSPERSE (BARIUM SULFATE) SUSPENSION [Suspect]

REACTIONS (2)
  - COMPUTERISED TOMOGRAM ABDOMEN ABNORMAL [None]
  - INTESTINAL OBSTRUCTION [None]
